FAERS Safety Report 14098824 (Version 1)
Quarter: 2017Q4

REPORT INFORMATION
  Report Type: Spontaneous
  Country: US (occurrence: None)
  Receive Date: 20171016
  Receipt Date: 20171016
  Transmission Date: 20180321
  Serious: Yes (Hospitalization)
  Sender: FDA-Public Use
  Company Number: None

PATIENT
  Age: 61 Year
  Sex: Female
  Weight: 65.7 kg

DRUGS (15)
  1. ZOFRAN [Concomitant]
     Active Substance: ONDANSETRON HYDROCHLORIDE
  2. SIMETHICONE (DIMETHICONE) [Concomitant]
     Active Substance: DIMETHICONE
  3. DECADRON [Concomitant]
     Active Substance: DEXAMETHASONE
  4. ZESTRIL [Concomitant]
     Active Substance: LISINOPRIL
  5. ROXICODONE [Concomitant]
     Active Substance: OXYCODONE HYDROCHLORIDE
  6. GABAPENTIN. [Concomitant]
     Active Substance: GABAPENTIN
  7. PROTONIX [Concomitant]
     Active Substance: PANTOPRAZOLE SODIUM
  8. FRAGMIN [Suspect]
     Active Substance: DALTEPARIN SODIUM
     Indication: PULMONARY EMBOLISM
     Dates: start: 20170905
  9. WELLBUTRIN [Concomitant]
     Active Substance: BUPROPION HYDROCHLORIDE
  10. PROSOM [Concomitant]
     Active Substance: ESTAZOLAM
  11. ATIVAN [Concomitant]
     Active Substance: LORAZEPAM
  12. DIFLOFENEC CREAM [Concomitant]
  13. FOSAMAX [Concomitant]
     Active Substance: ALENDRONATE SODIUM
  14. CISPLATIN/ALIMTA [Concomitant]
  15. COMPAZINE [Concomitant]
     Active Substance: PROCHLORPERAZINE MALEATE

REACTIONS (4)
  - Chest pain [None]
  - Neuralgia [None]
  - Pleuritic pain [None]
  - Cough [None]

NARRATIVE: CASE EVENT DATE: 20171014
